FAERS Safety Report 24686290 (Version 1)
Quarter: 2024Q4

REPORT INFORMATION
  Report Type: Spontaneous
  Country: US (occurrence: None)
  Receive Date: 20241128
  Receipt Date: 20241128
  Transmission Date: 20250115
  Serious: No
  Sender: Public
  Company Number: None

PATIENT
  Age: 48 Year
  Sex: Female
  Weight: 74.25 kg

DRUGS (1)
  1. NEFFY [Suspect]
     Active Substance: EPINEPHRINE
     Indication: Anaphylactic reaction
     Dosage: FREQUENCY : AS NEEDED;?OTHER ROUTE : NASAL SPRAY IN THE LEFT NOSTRIL;?
     Route: 050

REACTIONS (13)
  - Adverse drug reaction [None]
  - Nasal discomfort [None]
  - Oral discomfort [None]
  - Gingival discomfort [None]
  - Dental discomfort [None]
  - Chest pain [None]
  - Cardiac discomfort [None]
  - Abdominal pain upper [None]
  - Sneezing [None]
  - Dyspnoea [None]
  - Rhinorrhoea [None]
  - Nasal congestion [None]
  - Sinusitis [None]

NARRATIVE: CASE EVENT DATE: 20241118
